FAERS Safety Report 5690373-4 (Version None)
Quarter: 2008Q2

REPORT INFORMATION
  Report Type: 
  Country: None (occurrence: None)
  Receive Date: 20080401
  Receipt Date: 20080317
  Transmission Date: 20081010
  Serious: Yes (Other)
  Sender: FDA-Public Use
  Company Number: US-BAYER-200713423BCC

PATIENT
  Age: 18 Year
  Sex: Female
  Weight: 50 kg

DRUGS (3)
  1. ALEVE [Suspect]
     Indication: HEADACHE
     Route: 048
     Dates: start: 20020101, end: 20020101
  2. YASMIN [Concomitant]
     Indication: CONTRACEPTION
  3. CLARITIN [Concomitant]

REACTIONS (8)
  - ANAPHYLACTIC REACTION [None]
  - BLOOD PRESSURE DECREASED [None]
  - DRUG HYPERSENSITIVITY [None]
  - LOSS OF CONSCIOUSNESS [None]
  - SWOLLEN TONGUE [None]
  - THROAT TIGHTNESS [None]
  - UNEVALUABLE EVENT [None]
  - URTICARIA [None]
